FAERS Safety Report 10885661 (Version 1)
Quarter: 2015Q1

REPORT INFORMATION
  Report Type: Report from Study
  Country: BR (occurrence: BR)
  Receive Date: 20150304
  Receipt Date: 20150304
  Transmission Date: 20150721
  Serious: Yes (Life-Threatening, Hospitalization, Other)
  Sender: FDA-Public Use
  Company Number: PHHY2015BR025343

PATIENT
  Sex: Female

DRUGS (2)
  1. SANDOSTATIN LAR DEPOT [Suspect]
     Active Substance: OCTREOTIDE ACETATE
     Indication: PRODUCT USED FOR UNKNOWN INDICATION
     Route: 065
  2. AFINITOR [Suspect]
     Active Substance: EVEROLIMUS
     Indication: PRODUCT USED FOR UNKNOWN INDICATION
     Route: 065

REACTIONS (8)
  - Candida infection [Unknown]
  - Candida sepsis [Unknown]
  - Dyspnoea [Unknown]
  - General physical health deterioration [Unknown]
  - Neoplasm malignant [Unknown]
  - Metastasis [Unknown]
  - Pyrexia [Recovering/Resolving]
  - Pancreatic disorder [Unknown]
